FAERS Safety Report 4385611-4 (Version None)
Quarter: 2004Q2

REPORT INFORMATION
  Report Type: 
  Country: None (occurrence: None)
  Receive Date: 20040625
  Receipt Date: 20040625
  Transmission Date: 20050107
  Serious: Yes (Hospitalization)
  Sender: FDA-Public Use
  Company Number: None

PATIENT

DRUGS (1)
  1. PHENYTOIN [Suspect]
     Dosage: 400 MG QHS

REACTIONS (4)
  - ACCIDENTAL OVERDOSE [None]
  - ASTHENIA [None]
  - DRUG TOXICITY [None]
  - SOMNOLENCE [None]
